FAERS Safety Report 14941803 (Version 4)
Quarter: 2018Q2

REPORT INFORMATION
  Report Type: Spontaneous
  Country: LB (occurrence: LB)
  Receive Date: 20180527
  Receipt Date: 20180607
  Transmission Date: 20180711
  Serious: Yes (Other)
  Sender: FDA-Public Use
  Company Number: PHHY2018LB006897

PATIENT
  Sex: Male

DRUGS (54)
  1. CYCLOPHOSPHAMIDE. [Suspect]
     Active Substance: CYCLOPHOSPHAMIDE
     Indication: PRODUCT USED FOR UNKNOWN INDICATION
     Dosage: FOR 6 WEEKS
     Route: 037
  2. CYCLOPHOSPHAMIDE. [Suspect]
     Active Substance: CYCLOPHOSPHAMIDE
     Dosage: UNK UNK, QW
     Route: 037
  3. CYCLOPHOSPHAMIDE. [Suspect]
     Active Substance: CYCLOPHOSPHAMIDE
     Dosage: ONE WEEK
     Route: 037
  4. PREDNISONE. [Suspect]
     Active Substance: PREDNISONE
     Dosage: UNK, QW
     Route: 037
  5. METHOTREXATE. [Suspect]
     Active Substance: METHOTREXATE
     Dosage: CYCLES OF 2 WEEKS
     Route: 037
  6. METHOTREXATE. [Suspect]
     Active Substance: METHOTREXATE
     Dosage: UNK
     Route: 037
     Dates: start: 20180430
  7. CYTARABINE. [Suspect]
     Active Substance: CYTARABINE
     Dosage: UNK, Q2W
     Route: 037
  8. 6-MERCAPTOPURINE MONOHYDRATE [Suspect]
     Active Substance: MERCAPTOPURINE
     Dosage: CYCLES OF 2 WEEKS
     Route: 037
  9. VINCRISTINE [Suspect]
     Active Substance: VINCRISTINE
     Dosage: QW
     Route: 037
  10. METHOTREXATE. [Suspect]
     Active Substance: METHOTREXATE
     Dosage: 2 WEEKS
     Route: 037
  11. METHOTREXATE. [Suspect]
     Active Substance: METHOTREXATE
     Dosage: 12 MG, UNK
     Route: 037
  12. HYDROCHLOROTHIAZIDE. [Suspect]
     Active Substance: HYDROCHLOROTHIAZIDE
     Dosage: UNK
     Route: 037
     Dates: start: 20180430
  13. 6-MERCAPTOPURINE MONOHYDRATE [Suspect]
     Active Substance: MERCAPTOPURINE
     Dosage: 50 MG/M2, QD X 7 DAYS FOR 2 WEEKS
     Route: 037
  14. L-ASPARAGINASE [Suspect]
     Active Substance: ASPARAGINASE
     Dosage: EVERY 2 DAYS
     Route: 037
  15. THIOTEPA. [Suspect]
     Active Substance: THIOTEPA
     Indication: PRODUCT USED FOR UNKNOWN INDICATION
     Dosage: 15 MG/M2, FOR ONE WEEK
     Route: 065
  16. DAUNORUBICIN [Suspect]
     Active Substance: DAUNORUBICIN
     Dosage: UNK, QW
     Route: 037
  17. KEPPRA [Concomitant]
     Active Substance: LEVETIRACETAM
     Indication: PROPHYLAXIS
     Dosage: UNK
     Route: 065
     Dates: start: 20180427
  18. CYTARABINE. [Suspect]
     Active Substance: CYTARABINE
     Dosage: UNK, QW
     Route: 037
  19. CYTARABINE. [Suspect]
     Active Substance: CYTARABINE
     Dosage: 4 CYCLES
     Route: 037
  20. CYTARABINE. [Suspect]
     Active Substance: CYTARABINE
     Dosage: 200 MG/M2, FOR ONE WEEK
     Route: 037
  21. CYCLOPHOSPHAMIDE. [Suspect]
     Active Substance: CYCLOPHOSPHAMIDE
     Dosage: 200 MG/M2, FOR ONE WEEK
     Route: 037
  22. 6-MERCAPTOPURINE MONOHYDRATE [Suspect]
     Active Substance: MERCAPTOPURINE
     Dosage: UNK, QW
     Route: 037
  23. DEXAMETHASONE. [Suspect]
     Active Substance: DEXAMETHASONE
     Dosage: 3 WEEKS OF REINDUCTION
     Route: 037
  24. VINCRISTINE [Suspect]
     Active Substance: VINCRISTINE
     Dosage: UNK, QW
     Route: 037
  25. L-ASPARAGINASE [Suspect]
     Active Substance: ASPARAGINASE
     Dosage: 3 WEEKS OF REINDUCTION
     Route: 037
  26. DAUNORUBICIN [Suspect]
     Active Substance: DAUNORUBICIN
     Indication: PRODUCT USED FOR UNKNOWN INDICATION
     Dosage: FOR 6 WEEKS
     Route: 037
  27. HYDROCHLOROTHIAZIDE. [Suspect]
     Active Substance: HYDROCHLOROTHIAZIDE
     Dosage: 24 MG, UNK
     Route: 037
  28. CYTARABINE. [Suspect]
     Active Substance: CYTARABINE
     Indication: PRODUCT USED FOR UNKNOWN INDICATION
     Dosage: FOR 6 WEEKS
     Route: 037
  29. DEXAMETHASONE. [Suspect]
     Active Substance: DEXAMETHASONE
     Dosage: 12 MG/M2, QD FOR ONR WEEK
     Route: 037
  30. VINCRISTINE [Suspect]
     Active Substance: VINCRISTINE
     Indication: PRODUCT USED FOR UNKNOWN INDICATION
     Dosage: FOR 6 WEEKS
     Route: 037
  31. L-ASPARAGINASE [Suspect]
     Active Substance: ASPARAGINASE
     Dosage: 36 MG, UNK
     Route: 037
  32. L-ASPARAGINASE [Suspect]
     Active Substance: ASPARAGINASE
     Dosage: UNK
     Route: 037
     Dates: start: 20180430
  33. PREDNISONE. [Suspect]
     Active Substance: PREDNISONE
     Indication: PRODUCT USED FOR UNKNOWN INDICATION
     Dosage: FOR 6 WEEKS
     Route: 037
  34. METHOTREXATE. [Suspect]
     Active Substance: METHOTREXATE
     Dosage: 20 MG/M2, FOR 2 WEEKS
     Route: 037
  35. HYDROCHLOROTHIAZIDE. [Suspect]
     Active Substance: HYDROCHLOROTHIAZIDE
     Dosage: UNK
     Route: 037
     Dates: start: 20180503
  36. 6-MERCAPTOPURINE MONOHYDRATE [Suspect]
     Active Substance: MERCAPTOPURINE
     Indication: PRODUCT USED FOR UNKNOWN INDICATION
     Dosage: FOR 6 WEEKS
     Route: 037
  37. 6-MERCAPTOPURINE MONOHYDRATE [Suspect]
     Active Substance: MERCAPTOPURINE
     Dosage: 2 WEEKS
     Route: 037
  38. DEXAMETHASONE. [Suspect]
     Active Substance: DEXAMETHASONE
     Dosage: UNK, QD, FOR 28 DAYS
     Route: 037
  39. VINCRISTINE [Suspect]
     Active Substance: VINCRISTINE
     Dosage: ONE WEEK
     Route: 037
  40. VINCRISTINE [Suspect]
     Active Substance: VINCRISTINE
     Dosage: 1.5 MG/M2, FOR ONE WEEK
     Route: 037
  41. L-ASPARAGINASE [Suspect]
     Active Substance: ASPARAGINASE
     Dosage: UNK
     Route: 037
     Dates: start: 20180503
  42. METHOTREXATE. [Suspect]
     Active Substance: METHOTREXATE
     Dosage: UNK UNK, QW
     Route: 037
  43. METHOTREXATE. [Suspect]
     Active Substance: METHOTREXATE
     Dosage: ONE WEEK
     Route: 037
  44. METHOTREXATE. [Suspect]
     Active Substance: METHOTREXATE
     Dosage: UNK
     Route: 037
     Dates: start: 20180503
  45. ETOPOSIDE. [Suspect]
     Active Substance: ETOPOSIDE
     Indication: PRODUCT USED FOR UNKNOWN INDICATION
     Route: 065
  46. DEXAMETHASONE. [Suspect]
     Active Substance: DEXAMETHASONE
     Indication: PRODUCT USED FOR UNKNOWN INDICATION
     Dosage: ONE WEEK
     Route: 037
  47. DEXAMETHASONE. [Suspect]
     Active Substance: DEXAMETHASONE
     Dosage: UNK, Q2W
     Route: 037
  48. L-ASPARAGINASE [Suspect]
     Active Substance: ASPARAGINASE
     Indication: PRODUCT USED FOR UNKNOWN INDICATION
     Dosage: FOR 6 WEEKS
     Route: 037
  49. L-ASPARAGINASE [Suspect]
     Active Substance: ASPARAGINASE
     Dosage: QW
     Route: 037
  50. CYTOSINE ARABINOSIDE [Suspect]
     Active Substance: CYTARABINE
     Indication: PRODUCT USED FOR UNKNOWN INDICATION
     Dosage: ONE WEEK
     Route: 037
  51. METHOTREXATE. [Suspect]
     Active Substance: METHOTREXATE
     Indication: PRODUCT USED FOR UNKNOWN INDICATION
     Dosage: FOUR CYCLES
     Route: 037
  52. METHOTREXATE. [Suspect]
     Active Substance: METHOTREXATE
     Dosage: UNK, Q2W
     Route: 037
  53. HYDROCHLOROTHIAZIDE. [Suspect]
     Active Substance: HYDROCHLOROTHIAZIDE
     Indication: PRODUCT USED FOR UNKNOWN INDICATION
     Dosage: ONE WEEK
     Route: 037
  54. VINCRISTINE [Suspect]
     Active Substance: VINCRISTINE
     Dosage: 3 WEEKS OF REINDUCTION
     Route: 037

REACTIONS (8)
  - Metastases to spine [Unknown]
  - Dizziness [Unknown]
  - Back pain [Unknown]
  - Metastases to meninges [Unknown]
  - Metastases to central nervous system [Unknown]
  - Acute lymphocytic leukaemia recurrent [Unknown]
  - Papilloedema [Recovered/Resolved]
  - Headache [Unknown]
